FAERS Safety Report 7132481-7 (Version None)
Quarter: 2010Q4

REPORT INFORMATION
  Report Type: 
  Country: None (occurrence: None)
  Receive Date: 20101202
  Receipt Date: 20060714
  Transmission Date: 20110411
  Serious: Yes (Hospitalization)
  Sender: FDA-Public Use
  Company Number: AU-ROCHE-742283

PATIENT

DRUGS (1)
  1. FUZEON [Suspect]
     Route: 065

REACTIONS (1)
  - DIVERTICULITIS [None]
